FAERS Safety Report 9007894 (Version 2)
Quarter: 2013Q1

REPORT INFORMATION
  Report Type: Report from Study
  Country: JP (occurrence: JP)
  Receive Date: 20130111
  Receipt Date: 20130129
  Transmission Date: 20140127
  Serious: Yes (Other)
  Sender: FDA-Public Use
  Company Number: JP-ACCORD-015945

PATIENT
  Age: 28 Year
  Sex: Female

DRUGS (5)
  1. CISPLATIN [Suspect]
     Indication: CERVIX CARCINOMA STAGE IV
     Dosage: WITH 3 CYCLES EVERY 6 WEEKS; DAY 22
     Route: 042
  2. ADRIAMYCIN [Suspect]
     Indication: CERVIX CARCINOMA STAGE IV
     Dosage: WITH 3 CYCLES EVERY 6 WEEKS; DAY 1
     Route: 042
  3. VINCRISTINE [Suspect]
     Indication: CERVIX CARCINOMA STAGE IV
     Dosage: WITH 3 CYCLES EVERY 6 WEEKS; DAY 1
     Route: 042
  4. CYCLOPHOSPHAMIDE [Suspect]
     Indication: CERVIX CARCINOMA STAGE IV
     Dosage: WITH 3 CYCLES EVERY 6 WEEKS; DAY 1
     Route: 042
  5. ETOPOSIDE [Suspect]
     Indication: CERVIX CARCINOMA STAGE IV
     Dosage: WITH 3 CYCLES EVERY 6 WEEKS; DAY 22-24;?INDICATION: PURE SMALL CELL CARCINOMA OF THE UTERINE CERVIX
     Route: 042

REACTIONS (8)
  - Neutropenia [Unknown]
  - Anaemia [Unknown]
  - Thrombocytopenia [Unknown]
  - Diarrhoea [Unknown]
  - Nausea [Unknown]
  - Malaise [Unknown]
  - Renal failure [Unknown]
  - Off label use [Unknown]
